FAERS Safety Report 10702143 (Version 2)
Quarter: 2015Q1

REPORT INFORMATION
  Report Type: Report from Study
  Country: US (occurrence: US)
  Receive Date: 20150109
  Receipt Date: 20150109
  Transmission Date: 20150721
  Serious: No
  Sender: FDA-Public Use
  Company Number: US-CELGENEUS-USA-2014104507

PATIENT
  Age: 52 Year
  Sex: Female
  Weight: 127.12 kg

DRUGS (1)
  1. OTEZLA [Suspect]
     Active Substance: APREMILAST
     Indication: PSORIATIC ARTHROPATHY
     Dosage: 60 MILLIGRAM
     Route: 048
     Dates: start: 201405

REACTIONS (2)
  - Headache [Recovered/Resolved with Sequelae]
  - Diarrhoea [Recovering/Resolving]

NARRATIVE: CASE EVENT DATE: 201405
